FAERS Safety Report 6088436-7 (Version None)
Quarter: 2009Q1

REPORT INFORMATION
  Report Type: 
  Country: None (occurrence: None)
  Receive Date: 20090224
  Receipt Date: 20090211
  Transmission Date: 20090719
  Serious: Yes (Hospitalization, Other)
  Sender: FDA-Public Use
  Company Number: US-PFIZER INC-2009170663

PATIENT
  Sex: Female
  Weight: 82.54 kg

DRUGS (5)
  1. CHANTIX [Suspect]
     Indication: SMOKING CESSATION THERAPY
     Dosage: 0.5 MG, 1X/DAY
     Dates: start: 20090119, end: 20090203
  2. ADVAIR HFA [Concomitant]
     Dosage: UNK
  3. COMBIVENT [Concomitant]
     Dosage: UNK
  4. BACLOFEN [Concomitant]
     Indication: MULTIPLE SCLEROSIS
     Dosage: UNK
  5. MS CONTIN [Concomitant]
     Indication: MULTIPLE SCLEROSIS
     Dosage: UNK

REACTIONS (3)
  - DELIRIUM [None]
  - DEPRESSION [None]
  - SLEEP TERROR [None]
